FAERS Safety Report 10308227 (Version 3)
Quarter: 2014Q4

REPORT INFORMATION
  Report Type: Spontaneous
  Country: CA (occurrence: None)
  Receive Date: 20140711
  Receipt Date: 20141017
  Transmission Date: 20150528
  Serious: Yes (Hospitalization, Other)
  Sender: FDA-Public Use
  Company Number: 2014-002033

PATIENT
  Age: 79 Year
  Sex: Female

DRUGS (6)
  1. DICLOFENAC (DICLOFENAC) [Suspect]
     Active Substance: DICLOFENAC SODIUM
  2. RABEPRAZOLE (RABEPRAZOLE) [Concomitant]
     Active Substance: RABEPRAZOLE
  3. NAPROXEN (NAPROXEN) [Concomitant]
     Active Substance: NAPROXEN
  4. RISEDRONATE SODIUM. [Suspect]
     Active Substance: RISEDRONATE SODIUM
     Route: 048
  5. ACTONEL [Suspect]
     Active Substance: RISEDRONATE SODIUM
     Route: 048
  6. NAPROXEN SODIUM (NAPROXEN SODIUM) UNSPECIFIED [Suspect]
     Active Substance: NAPROXEN SODIUM

REACTIONS (7)
  - Gastric ulcer [None]
  - Faeces discoloured [None]
  - Arthralgia [None]
  - Gastrointestinal haemorrhage [None]
  - Anaemia [None]
  - Musculoskeletal pain [None]
  - Pain in extremity [None]
